FAERS Safety Report 26066164 (Version 1)
Quarter: 2025Q4

REPORT INFORMATION
  Report Type: Spontaneous
  Country: CR (occurrence: CR)
  Receive Date: 20251119
  Receipt Date: 20251119
  Transmission Date: 20260117
  Serious: Yes (Life-Threatening, Disabling, Other)
  Sender: ELI LILLY AND COMPANY
  Company Number: CR-ELI_LILLY_AND_COMPANY-CR202511018842

PATIENT
  Age: 76 Year
  Sex: Male
  Weight: 73 kg

DRUGS (2)
  1. CIALIS [Suspect]
     Active Substance: TADALAFIL
     Indication: Product used for unknown indication
     Dosage: 5 MG, INTERMITTENTLY (DID NOT TAKE IT EVERY DAY DESPITE THE DOCTOR^S INSTRUCTIONS TO TAKE IT DAILY)
     Route: 048
     Dates: end: 202507
  2. PANTOPRAZOLE SODIUM [Concomitant]
     Active Substance: PANTOPRAZOLE SODIUM
     Indication: Product used for unknown indication
     Dosage: 40 MG, UNKNOWN
     Route: 048
     Dates: start: 20251008

REACTIONS (3)
  - Cardiac disorder [Not Recovered/Not Resolved]
  - Syncope [Unknown]
  - Intentional product misuse [Unknown]
